FAERS Safety Report 4989866-4 (Version None)
Quarter: 2006Q2

REPORT INFORMATION
  Report Type: 
  Country: None (occurrence: None)
  Receive Date: 20060427
  Receipt Date: 20060413
  Transmission Date: 20061013
  Serious: Yes (Other)
  Sender: FDA-Public Use
  Company Number: 2006BH008109

PATIENT
  Age: 2 Year
  Sex: Male

DRUGS (2)
  1. GAMMAGARD S/D [Suspect]
     Dosage: 12 GM; EVERY DAY; IV
     Route: 042
     Dates: start: 20060321, end: 20060321
  2. AUGMENTIN '125' [Concomitant]

REACTIONS (4)
  - CHILLS [None]
  - INFUSION RELATED REACTION [None]
  - PYREXIA [None]
  - TACHYCARDIA [None]
